FAERS Safety Report 5430307-0 (Version None)
Quarter: 2007Q3

REPORT INFORMATION
  Report Type: 
  Country: None (occurrence: None)
  Receive Date: 20070830
  Receipt Date: 20070827
  Transmission Date: 20080115
  Serious: Yes (Death)
  Sender: FDA-Public Use
  Company Number: PHRM2007FR01156

PATIENT
  Age: 32 Year
  Sex: Female

DRUGS (2)
  1. SYNTOCINON [Suspect]
     Indication: LABOUR INDUCTION
     Dates: start: 20050819
  2. PROSTINE [Concomitant]
     Indication: LABOUR INDUCTION

REACTIONS (4)
  - ANAPHYLACTOID SYNDROME OF PREGNANCY [None]
  - OVERDOSE [None]
  - UTERINE HYPERTONUS [None]
  - UTERINE SPASM [None]
